FAERS Safety Report 12346733 (Version 1)
Quarter: 2016Q2

REPORT INFORMATION
  Report Type: Spontaneous
  Country: TW (occurrence: TW)
  Receive Date: 20160509
  Receipt Date: 20160509
  Transmission Date: 20160815
  Serious: Yes (Other)
  Sender: FDA-Public Use
  Company Number: TW-SUN PHARMACEUTICAL INDUSTRIES LTD-2016RR-115861

PATIENT
  Age: 39 Year
  Sex: Female

DRUGS (3)
  1. IMATINIB [Suspect]
     Active Substance: IMATINIB
     Indication: HYPEREOSINOPHILIC SYNDROME
     Dosage: 400 MG, DAILY
     Route: 065
     Dates: start: 201311
  2. METHYLPREDNISOLONE. [Concomitant]
     Active Substance: METHYLPREDNISOLONE
     Indication: HYPEREOSINOPHILIC SYNDROME
     Dosage: 8 MG, DAILY
     Route: 065
     Dates: start: 200711
  3. IMATINIB [Suspect]
     Active Substance: IMATINIB
     Indication: HYPEREOSINOPHILIC SYNDROME
     Dosage: 200 MG, DAILY
     Route: 065
     Dates: start: 200711

REACTIONS (1)
  - Drug resistance [Unknown]
